FAERS Safety Report 13058267 (Version 2)
Quarter: 2016Q4

REPORT INFORMATION
  Report Type: Report from Study
  Country: US (occurrence: US)
  Receive Date: 20161223
  Receipt Date: 20161226
  Transmission Date: 20170207
  Serious: Yes (Death)
  Sender: FDA-Public Use
  Company Number: US-ROCHE-1871808

PATIENT
  Sex: Female

DRUGS (9)
  1. COZAAR [Concomitant]
     Active Substance: LOSARTAN POTASSIUM
     Indication: HYPERSENSITIVITY
  2. CODEINE [Concomitant]
     Active Substance: CODEINE
     Indication: HYPERSENSITIVITY
  3. GLUCOPHAGE [Concomitant]
     Active Substance: METFORMIN HYDROCHLORIDE
     Indication: HYPERSENSITIVITY
  4. ASACOL [Concomitant]
     Active Substance: MESALAMINE
     Indication: HYPERSENSITIVITY
  5. LUCENTIS [Suspect]
     Active Substance: RANIBIZUMAB
     Indication: NEOVASCULAR AGE-RELATED MACULAR DEGENERATION
     Dosage: 0.5MGS EVERY MONTH INTRAVITREALLY ;ONGOING: NO
     Route: 050
  6. PLAQUENIL [Concomitant]
     Active Substance: HYDROXYCHLOROQUINE SULFATE
     Indication: HYPERSENSITIVITY
  7. VERAPAMIL [Concomitant]
     Active Substance: VERAPAMIL HYDROCHLORIDE
     Indication: HYPERSENSITIVITY
  8. ATENOLOL. [Concomitant]
     Active Substance: ATENOLOL
     Indication: HYPERSENSITIVITY
  9. PENTOSA [Concomitant]
     Indication: HYPERSENSITIVITY

REACTIONS (1)
  - Death [Fatal]
